FAERS Safety Report 24143565 (Version 1)
Quarter: 2024Q3

REPORT INFORMATION
  Report Type: Spontaneous
  Country: US (occurrence: US)
  Receive Date: 20240727
  Receipt Date: 20240727
  Transmission Date: 20241017
  Serious: Yes (Death, Other)
  Sender: AMGEN
  Company Number: US-AMGEN-USASP2024148385

PATIENT

DRUGS (7)
  1. PREDNISONE [Suspect]
     Active Substance: PREDNISONE
     Indication: B-cell type acute leukaemia
     Dosage: WAS GIVEN ON DAYS 1 TO 5 OF EACH 28-DAY CYCLE, AT DOSE LEVEL 1
     Route: 065
  2. ETOPOSIDE [Concomitant]
     Active Substance: ETOPOSIDE
     Indication: B-cell type acute leukaemia
     Dosage: WAS GIVEN ON DAYS 1 TO 5 OF EACH 28-DAY CYCLE, AT DOSE LEVEL 1
  3. VINCRISTINE [Concomitant]
     Active Substance: VINCRISTINE
     Indication: B-cell type acute leukaemia
     Dosage: WAS GIVEN ON DAYS 1 TO 5 OF EACH 28-DAY CYCLE, AT DOSE LEVEL 1
  4. CYCLOPHOSPHAMIDE [Concomitant]
     Active Substance: CYCLOPHOSPHAMIDE
     Indication: B-cell type acute leukaemia
     Dosage: WAS GIVEN ON DAYS 1 TO 5 OF EACH 28-DAY CYCLE, AT DOSE LEVEL 1
  5. DOXORUBICIN [Concomitant]
     Active Substance: DOXORUBICIN
     Indication: B-cell type acute leukaemia
     Dosage: WAS GIVEN ON DAYS 1 TO 5 OF EACH 28-DAY CYCLE, AT DOSE LEVEL 1
  6. INOTUZUMAB OZOGAMICIN [Concomitant]
     Active Substance: INOTUZUMAB OZOGAMICIN
     Indication: B-cell type acute leukaemia
     Dosage: 0.6 MILLIGRAM/SQ. METER, WAS GIVEN ON DAYS 8 AND 15 OF A 28-DAY CYCLE AT DOSE LEVEL 3
  7. INOTUZUMAB OZOGAMICIN [Concomitant]
     Active Substance: INOTUZUMAB OZOGAMICIN
     Dosage: 0.6 MILLIGRAM/SQ. METER, WAS GIVEN ON DAYS 8 AND 15 OF A 28-DAY CYCLE AT DOSE LEVEL 3

REACTIONS (3)
  - Death [Fatal]
  - B-cell type acute leukaemia [Unknown]
  - Therapy non-responder [Unknown]
